FAERS Safety Report 7029770-3 (Version None)
Quarter: 2010Q4

REPORT INFORMATION
  Report Type: 
  Country: None (occurrence: None)
  Receive Date: 20101005
  Receipt Date: 20101004
  Transmission Date: 20110411
  Serious: Yes (Other)
  Sender: FDA-Public Use
  Company Number: US-BRISTOL-MYERS SQUIBB COMPANY-15315591

PATIENT
  Age: 49 Year
  Sex: Female

DRUGS (4)
  1. ABILIFY [Suspect]
     Dates: start: 20100701
  2. ZOLOFT [Concomitant]
  3. XANAX [Concomitant]
  4. MARIJUANA [Concomitant]
     Dosage: SMOKE

REACTIONS (1)
  - HALLUCINATION [None]
